FAERS Safety Report 14470817 (Version 1)
Quarter: 2018Q1

REPORT INFORMATION
  Report Type: Report from Study
  Country: CA (occurrence: CA)
  Receive Date: 20180131
  Receipt Date: 20180131
  Transmission Date: 20180509
  Serious: Yes (Death, Hospitalization)
  Sender: FDA-Public Use
  Company Number: CA-ACTELION-A-NJ2018-166415

PATIENT
  Age: 70 Year
  Sex: Female
  Weight: 60 kg

DRUGS (18)
  1. HALOPERIDOL. [Concomitant]
     Active Substance: HALOPERIDOL
  2. LIDOCAINE. [Concomitant]
     Active Substance: LIDOCAINE
  3. TRACLEER [Suspect]
     Active Substance: BOSENTAN
     Indication: PULMONARY ARTERIAL HYPERTENSION
     Dosage: 125 MG, UNK
     Route: 048
     Dates: start: 20161030
  4. VITAMIN B COMPLEX [Concomitant]
     Active Substance: CYANOCOBALAMIN\DEXPANTHENOL\NIACINAMIDE\PYRIDOXINE HYDROCHLORIDE\RIBOFLAVIN 5^-PHOSPHATE SODIUM\THIAMINE HYDROCHLORIDE\VITAMIN B COMPLEX
  5. DOCUSATE [Concomitant]
     Active Substance: DOCUSATE
  6. REFRESH TEARS [Concomitant]
     Active Substance: CARBOXYMETHYLCELLULOSE SODIUM
  7. RANITIDINE. [Concomitant]
     Active Substance: RANITIDINE
  8. NITROLINGUAL [Concomitant]
     Active Substance: NITROGLYCERIN
  9. METOPROLOL. [Concomitant]
     Active Substance: METOPROLOL
  10. MIDODRINE HCL [Concomitant]
     Active Substance: MIDODRINE HYDROCHLORIDE
  11. DIGOXIN. [Concomitant]
     Active Substance: DIGOXIN
  12. ASA [Concomitant]
     Active Substance: ASPIRIN
  13. CALCITRIOL. [Concomitant]
     Active Substance: CALCITRIOL
  14. PROCTODAN HC [Concomitant]
     Active Substance: HYDROCORTISONE\PRAMOXINE\ZINC SULFATE
  15. BISACODYL. [Concomitant]
     Active Substance: BISACODYL
  16. PANTOPRAZOLE [Concomitant]
     Active Substance: PANTOPRAZOLE
  17. VITAMIN C [Concomitant]
     Active Substance: ASCORBIC ACID
  18. HYDROCORTISONE ACETATE. [Concomitant]
     Active Substance: HYDROCORTISONE ACETATE

REACTIONS (1)
  - Death [Fatal]

NARRATIVE: CASE EVENT DATE: 20171219
